FAERS Safety Report 4908065-5 (Version None)
Quarter: 2006Q1

REPORT INFORMATION
  Report Type: 
  Country: None (occurrence: None)
  Receive Date: 20060210
  Receipt Date: 20051122
  Transmission Date: 20060701
  Serious: Yes (Hospitalization)
  Sender: FDA-Public Use
  Company Number: JP-ROCHE-426183

PATIENT
  Age: 5 Year
  Sex: Male
  Weight: 17 kg

DRUGS (5)
  1. ROCEPHIN [Suspect]
     Indication: GASTROENTERITIS
     Route: 041
     Dates: start: 20050716, end: 20050716
  2. ROCEPHIN [Suspect]
     Dosage: CORRESPONDS TO 100 MG/KG DAILY.
     Route: 041
     Dates: start: 20050717, end: 20050719
  3. ROCEPHIN [Suspect]
     Route: 041
     Dates: start: 20050720, end: 20050720
  4. FLOMOX [Concomitant]
     Route: 048
     Dates: start: 20050710, end: 20050711
  5. BACCIDAL [Concomitant]
     Route: 048
     Dates: start: 20050712, end: 20050713

REACTIONS (3)
  - KIDNEY ENLARGEMENT [None]
  - NEPHRITIS INTERSTITIAL [None]
  - RENAL FAILURE ACUTE [None]
